FAERS Safety Report 6537027-X (Version None)
Quarter: 2010Q1

REPORT INFORMATION
  Report Type: 
  Country: None (occurrence: None)
  Receive Date: 20100110
  Receipt Date: 20091230
  Transmission Date: 20100710
  Serious: Yes (Death, Hospitalization, Other)
  Sender: FDA-Public Use
  Company Number: CLOF-1000796

PATIENT
  Age: 65 Year
  Sex: Female

DRUGS (4)
  1. CLOLAR [Suspect]
     Indication: MYELOID LEUKAEMIA
     Dosage: 40 MG/M2, QDX5, INTRAVENOUS
     Route: 042
     Dates: start: 20091129, end: 20091203
  2. MELPHALAN HYDROCHLORIDE [Suspect]
     Indication: MYELOID LEUKAEMIA
     Dosage: 140 MG/M2, ONCE, INTRAVENOUS
     Route: 042
     Dates: start: 20091204, end: 20091204
  3. TACROLIMUS [Concomitant]
  4. SIROLIMUS (RAPAMUNE) [Concomitant]

REACTIONS (18)
  - ALANINE AMINOTRANSFERASE INCREASED [None]
  - ATRIAL FIBRILLATION [None]
  - CEREBRAL INFARCTION [None]
  - COUGH [None]
  - DYSPNOEA [None]
  - EPISTAXIS [None]
  - FLUID OVERLOAD [None]
  - HAEMORRHAGIC STROKE [None]
  - HYPOTENSION [None]
  - HYPOXIA [None]
  - LUNG INFILTRATION [None]
  - MULTI-ORGAN FAILURE [None]
  - NEPHROPATHY TOXIC [None]
  - PUPIL FIXED [None]
  - RENAL FAILURE [None]
  - RESPIRATORY FAILURE [None]
  - TACHYCARDIA [None]
  - UNRESPONSIVE TO STIMULI [None]
